FAERS Safety Report 4666897-5 (Version None)
Quarter: 2005Q2

REPORT INFORMATION
  Report Type: 
  Country: None (occurrence: None)
  Receive Date: 20050518
  Receipt Date: 20040607
  Transmission Date: 20051028
  Serious: Yes (Other)
  Sender: FDA-Public Use
  Company Number: 2004217570US

PATIENT
  Sex: Female

DRUGS (2)
  1. DEPO-PROVERA [Suspect]
     Indication: CONTRACEPTION
     Dosage: 150 MG, 1ST INJECTION;  150 MG, LAST INJECTION
     Dates: start: 20030618, end: 20030618
  2. DEPO-PROVERA [Suspect]
     Indication: CONTRACEPTION
     Dosage: 150 MG, 1ST INJECTION;  150 MG, LAST INJECTION
     Dates: start: 20040517, end: 20040517

REACTIONS (1)
  - UNINTENDED PREGNANCY [None]
